FAERS Safety Report 9230965 (Version 2)
Quarter: 2013Q3

REPORT INFORMATION
  Report Type: Spontaneous
  Country: US (occurrence: US)
  Receive Date: 20130415
  Receipt Date: 20130716
  Transmission Date: 20140515
  Serious: No
  Sender: FDA-Public Use
  Company Number: US-TEVA-397861USA

PATIENT
  Sex: Male

DRUGS (6)
  1. COPAXONE [Suspect]
     Indication: MULTIPLE SCLEROSIS
     Dates: start: 201210, end: 2013
  2. NEURONTIN [Concomitant]
  3. AMITRIPTYLINE [Concomitant]
     Indication: PARAESTHESIA
  4. AMPYRA [Concomitant]
     Indication: FATIGUE
  5. VITAMIN D [Concomitant]
     Indication: GAIT DISTURBANCE
  6. VITAMIN D [Concomitant]
     Indication: VITAMIN D DEFICIENCY

REACTIONS (1)
  - Oropharyngeal pain [Recovered/Resolved]
